FAERS Safety Report 19174266 (Version 1)
Quarter: 2021Q2

REPORT INFORMATION
  Report Type: Spontaneous
  Country: US (occurrence: US)
  Receive Date: 20210423
  Receipt Date: 20210423
  Transmission Date: 20210717
  Serious: No
  Sender: FDA-Public Use
  Company Number: US-009507513-2103USA007134

PATIENT
  Age: 82 Year
  Sex: Male

DRUGS (1)
  1. TICE BCG [Suspect]
     Active Substance: BACILLUS CALMETTE-GUERIN SUBSTRAIN TICE LIVE ANTIGEN
     Indication: BLADDER CANCER
     Dosage: PLANNED AS SIX WEEKLY BUT THE FOURTH TREATMENT WAS DELAYED
     Route: 043
     Dates: start: 2016

REACTIONS (2)
  - Lymphocytosis [Unknown]
  - Therapeutic response unexpected [Unknown]
